FAERS Safety Report 5248845-2 (Version None)
Quarter: 2007Q1

REPORT INFORMATION
  Report Type: 
  Country: None (occurrence: None)
  Receive Date: 20070228
  Receipt Date: 20060309
  Transmission Date: 20070707
  Serious: No
  Sender: FDA-Public Use
  Company Number: US-GLAXOSMITHKLINE-A0596924A

PATIENT
  Age: 54 Year
  Sex: Female

DRUGS (7)
  1. VALTREX [Suspect]
     Dosage: 500MG PER DAY
     Route: 048
  2. LIPITOR [Concomitant]
  3. DIOVAN HCT [Concomitant]
  4. ASPIRIN [Concomitant]
  5. CALCIUM [Concomitant]
  6. COCONUT OIL [Concomitant]
  7. CENTRUM [Concomitant]

REACTIONS (1)
  - DRY MOUTH [None]
